FAERS Safety Report 20138157 (Version 4)
Quarter: 2021Q4

REPORT INFORMATION
  Report Type: Report from Study
  Country: KR (occurrence: None)
  Receive Date: 20211202
  Receipt Date: 20211228
  Transmission Date: 20220303
  Serious: Yes (Hospitalization)
  Sender: FDA-Public Use
  Company Number: KR-ROCHE-2862646

PATIENT
  Age: 71 Year
  Sex: Male
  Weight: 52 kg

DRUGS (44)
  1. ATEZOLIZUMAB [Suspect]
     Active Substance: ATEZOLIZUMAB
     Indication: Non-small cell lung cancer
     Dosage: MOST RECENT DOSE OF ATEZOLIZUMAB ON 16/JUN/2021,04/AUG/2021,17/NOV/2021 AND 08/DEC/2021.
     Route: 041
     Dates: start: 20210414
  2. BEVACIZUMAB [Suspect]
     Active Substance: BEVACIZUMAB
     Indication: Non-small cell lung cancer
     Dosage: MOST RECENT DOSE OF BEVACIZUMAB ON 16/JUN/2021, 04/AUG/2021,17/NOV/2021 AND 08/DEC/2021
     Route: 042
     Dates: start: 20210414
  3. PACLITAXEL [Suspect]
     Active Substance: PACLITAXEL
     Indication: Non-small cell lung cancer
     Dosage: MOST RECENT DOSE OF PACLITAXEL ON 16/JUN/2021
     Route: 042
     Dates: start: 20210414
  4. CARBOPLATIN [Suspect]
     Active Substance: CARBOPLATIN
     Indication: Non-small cell lung cancer
     Dosage: MOST RECENT DOSE OF CARBOPLATIN ON 16/JUN/2021
     Route: 042
     Dates: start: 20210414
  5. AMLODIPINE [Concomitant]
     Active Substance: AMLODIPINE BESYLATE
     Dates: start: 20201124
  6. ASPIRIN [Concomitant]
     Active Substance: ASPIRIN
     Dates: start: 20190124
  7. ATORVASTATIN [Concomitant]
     Active Substance: ATORVASTATIN
     Dates: start: 20190130
  8. EDARBI [Concomitant]
     Active Substance: AZILSARTAN KAMEDOXOMIL
     Dates: start: 20210202
  9. TEGOPRAZAN [Concomitant]
     Active Substance: TEGOPRAZAN
     Dates: start: 20201124
  10. TRIMEBUTINE [Concomitant]
     Active Substance: TRIMEBUTINE
     Dates: start: 20210407
  11. TRIMEBUTINE [Concomitant]
     Active Substance: TRIMEBUTINE
     Dates: start: 20211129
  12. NAFTOPIDIL [Concomitant]
     Active Substance: NAFTOPIDIL
     Dates: start: 20210413
  13. FERROUS SULFATE [Concomitant]
     Active Substance: FERROUS SULFATE
     Dates: start: 20210413
  14. MOSAPRIDE [Concomitant]
     Active Substance: MOSAPRIDE
     Dates: start: 20210518
  15. BUTYLSCOPOLAMINE [Concomitant]
     Active Substance: BUTYLSCOPOLAMINE
     Dosage: NEXT DOSE RECEIVED ON 14/AUG/2021
     Dates: start: 20210513
  16. BUTYLSCOPOLAMINE [Concomitant]
     Active Substance: BUTYLSCOPOLAMINE
     Dates: start: 20211124, end: 20211202
  17. BUTYLSCOPOLAMINE [Concomitant]
     Active Substance: BUTYLSCOPOLAMINE
     Dates: start: 20211210
  18. NALOXONE HYDROCHLORIDE\OXYCODONE HYDROCHLORIDE [Concomitant]
     Active Substance: NALOXONE HYDROCHLORIDE\OXYCODONE HYDROCHLORIDE
     Dates: start: 20210518
  19. GABAPENTIN [Concomitant]
     Active Substance: GABAPENTIN
     Dates: start: 20210518
  20. NICARDIPINE [Concomitant]
     Active Substance: NICARDIPINE
     Dates: start: 20210616
  21. NICARDIPINE [Concomitant]
     Active Substance: NICARDIPINE
     Dates: start: 20210811, end: 20210817
  22. NICARDIPINE [Concomitant]
     Active Substance: NICARDIPINE
     Dates: start: 20211129, end: 20211129
  23. AMLODIPINE BESYLATE\HYDROCHLOROTHIAZIDE\OLMESARTAN MEDOXOMIL [Concomitant]
     Active Substance: AMLODIPINE BESYLATE\HYDROCHLOROTHIAZIDE\OLMESARTAN MEDOXOMIL
     Dates: start: 20210628
  24. HYDROCHLOROTHIAZIDE [Concomitant]
     Active Substance: HYDROCHLOROTHIAZIDE
     Dates: start: 20210612
  25. CEFEPIME [Concomitant]
     Active Substance: CEFEPIME HYDROCHLORIDE
     Dates: start: 20210630
  26. ACETAMINOPHEN [Concomitant]
     Active Substance: ACETAMINOPHEN
     Dates: start: 20210630, end: 20210630
  27. ZALTOPROFEN [Concomitant]
     Active Substance: ZALTOPROFEN
     Dates: start: 20210701, end: 20210701
  28. MAGNESIUM HYDROXIDE [Concomitant]
     Active Substance: MAGNESIUM HYDROXIDE
     Dates: start: 20210413
  29. LEVETIRACETAM [Concomitant]
     Active Substance: LEVETIRACETAM
     Dates: start: 20210505
  30. DIVALPROEX SODIUM [Concomitant]
     Active Substance: DIVALPROEX SODIUM
     Dates: start: 20210729
  31. CELECOXIB [Concomitant]
     Active Substance: CELECOXIB
     Dates: start: 20210714
  32. CELECOXIB [Concomitant]
     Active Substance: CELECOXIB
     Dates: start: 20211117
  33. OLIMEL E [Concomitant]
     Active Substance: AMINO ACIDS\DEXTROSE\ELECTROLYTES NOS\SOYBEAN OIL
     Dates: start: 20210809, end: 20210817
  34. OLIMEL E [Concomitant]
     Active Substance: AMINO ACIDS\DEXTROSE\ELECTROLYTES NOS\SOYBEAN OIL
     Dates: start: 20211124
  35. OLIMEL E [Concomitant]
     Active Substance: AMINO ACIDS\DEXTROSE\ELECTROLYTES NOS\SOYBEAN OIL
     Dates: start: 20211211
  36. NIFEDIPINE [Concomitant]
     Active Substance: NIFEDIPINE
     Dates: start: 20210817
  37. CEFTRIAXONE [Concomitant]
     Active Substance: CEFTRIAXONE
     Dates: start: 20211124, end: 20211203
  38. TRIMADOL [Concomitant]
     Dates: start: 20211124, end: 20211126
  39. MEPERIDINE [Concomitant]
     Active Substance: MEPERIDINE
     Dates: start: 20211124, end: 20211124
  40. MORPHINE [Concomitant]
     Active Substance: MORPHINE
     Dates: start: 20211127, end: 20211130
  41. POTASSIUM CHLORIDE [Concomitant]
     Active Substance: POTASSIUM CHLORIDE
     Dates: start: 20211125, end: 20211202
  42. METOCLOPRAMIDE [Concomitant]
     Active Substance: METOCLOPRAMIDE
     Dates: start: 20211211, end: 20211211
  43. MEGESTROL [Concomitant]
     Active Substance: MEGESTROL
     Dates: start: 20211213
  44. DEXAMETHASONE [Concomitant]
     Active Substance: DEXAMETHASONE
     Dates: start: 20211213

REACTIONS (4)
  - Neutropenia [Recovered/Resolved]
  - Headache [Recovering/Resolving]
  - Asthenia [Recovered/Resolved]
  - Back pain [Not Recovered/Not Resolved]

NARRATIVE: CASE EVENT DATE: 20210630
